FAERS Safety Report 4636363-1 (Version None)
Quarter: 2005Q2

REPORT INFORMATION
  Report Type: 
  Country: None (occurrence: None)
  Receive Date: 20050415
  Receipt Date: 20050103
  Transmission Date: 20051028
  Serious: No
  Sender: FDA-Public Use
  Company Number: US-BRISTOL-MYERS SQUIBB COMPANY-12846069

PATIENT
  Age: 53 Year
  Sex: Female

DRUGS (12)
  1. PARAPLATIN [Suspect]
     Dates: start: 20041011, end: 20041011
  2. PACLITAXEL [Suspect]
     Dates: start: 20050131, end: 20050131
  3. HERCEPTIN [Suspect]
     Dosage: DOSE DECREASED TO 158 BEGINNING 18-OCT-2004.
     Dates: start: 20041011, end: 20041011
  4. LUPRON [Concomitant]
  5. ZOMETA [Concomitant]
  6. ARANESP [Concomitant]
     Dosage: DOSE INCREASED TO 400 BEGINNING 13-DEC-2004
  7. TAGAMET [Concomitant]
  8. BENADRYL [Concomitant]
  9. DEXAMETHASONE [Concomitant]
  10. ALOXI [Concomitant]
  11. ATIVAN [Concomitant]
  12. TYLENOL (CAPLET) [Concomitant]
     Dosage: DOSE INCREASED TO 1000 BEGINNING 01-NOV-2004.

REACTIONS (1)
  - NEUROPATHY PERIPHERAL [None]
